FAERS Safety Report 8467841-5 (Version None)
Quarter: 2012Q2

REPORT INFORMATION
  Report Type: 
  Country: None (occurrence: None)
  Receive Date: 20120626
  Receipt Date: 20120618
  Transmission Date: 20120825
  Serious: Yes (Death, Hospitalization)
  Sender: FDA-Public Use
  Company Number: JP-GLAXOSMITHKLINE-B0771988A

PATIENT
  Sex: Female

DRUGS (17)
  1. MICARDIS [Concomitant]
     Indication: HYPERTENSION
     Dosage: 40MG PER DAY
     Route: 048
     Dates: start: 20080101
  2. LITHIUM CARBONATE [Concomitant]
     Indication: BIPOLAR I DISORDER
     Dosage: 200MG PER DAY
     Route: 048
  3. DEPAS [Concomitant]
     Indication: BIPOLAR I DISORDER
     Dosage: .5MG PER DAY
     Route: 048
  4. LAMICTAL [Suspect]
     Dosage: 100MG PER DAY
     Route: 048
     Dates: start: 20111027, end: 20111216
  5. NORVASC [Concomitant]
     Indication: HYPERTENSION
     Dosage: 5MG PER DAY
     Route: 048
     Dates: start: 20080101
  6. DOGMATYL [Concomitant]
     Indication: BIPOLAR I DISORDER
     Dosage: 50MG PER DAY
     Route: 048
  7. AKINETON [Concomitant]
     Indication: BIPOLAR I DISORDER
     Dosage: 1MG PER DAY
     Route: 048
  8. LAMICTAL [Suspect]
     Indication: BIPOLAR I DISORDER
     Dosage: 50MG PER DAY
     Route: 048
     Dates: start: 20111006, end: 20111026
  9. SILECE [Concomitant]
     Indication: BIPOLAR I DISORDER
     Dosage: 2MG PER DAY
     Route: 048
     Dates: start: 20080101
  10. AMLODIPINE [Concomitant]
     Dosage: 5MG PER DAY
     Route: 048
  11. SEROQUEL [Concomitant]
     Indication: BIPOLAR I DISORDER
     Dosage: 15MG PER DAY
     Route: 048
  12. HALCION [Concomitant]
     Indication: BIPOLAR I DISORDER
     Dosage: .5MG PER DAY
     Route: 048
     Dates: start: 20080101
  13. CLONAZEPAM [Concomitant]
     Route: 048
  14. AMITRIPTYLINE HCL [Concomitant]
     Indication: BIPOLAR I DISORDER
     Dosage: 50MG PER DAY
     Route: 048
     Dates: start: 20080101
  15. LEVOTOMIN [Concomitant]
     Indication: BIPOLAR I DISORDER
     Dosage: 10MG PER DAY
     Route: 048
     Dates: start: 20080101
  16. ZYPREXA [Concomitant]
     Indication: BIPOLAR I DISORDER
     Dosage: 5MG PER DAY
     Route: 048
     Dates: start: 20080101
  17. LANSOPRAZOLE [Concomitant]
     Dosage: 15MG PER DAY
     Route: 048
     Dates: start: 20080101

REACTIONS (52)
  - DRUG RASH WITH EOSINOPHILIA AND SYSTEMIC SYMPTOMS [None]
  - HAEMOPTYSIS [None]
  - PULMONARY CAVITATION [None]
  - LUNG ABSCESS [None]
  - ASPARTATE AMINOTRANSFERASE INCREASED [None]
  - VISUAL FIELD DEFECT [None]
  - DEPRESSED LEVEL OF CONSCIOUSNESS [None]
  - CYTOMEGALOVIRUS TEST POSITIVE [None]
  - AORTIC ANEURYSM RUPTURE [None]
  - GAMMA-GLUTAMYLTRANSFERASE INCREASED [None]
  - LYMPHOCYTE COUNT DECREASED [None]
  - PERIVASCULAR DERMATITIS [None]
  - DRUG ERUPTION [None]
  - ARTERIOVENOUS GRAFT SITE HAEMATOMA [None]
  - ANEURYSM [None]
  - PROTEIN TOTAL DECREASED [None]
  - GENERALISED ERYTHEMA [None]
  - CARDIAC ARREST [None]
  - ASPHYXIA [None]
  - EOSINOPHIL COUNT INCREASED [None]
  - HEPATIC FUNCTION ABNORMAL [None]
  - AORTIC INJURY [None]
  - SHOCK HAEMORRHAGIC [None]
  - DEATH [None]
  - BRAIN NATRIURETIC PEPTIDE DECREASED [None]
  - DERMATITIS EXFOLIATIVE [None]
  - LYMPHADENOPATHY [None]
  - TOXIC SKIN ERUPTION [None]
  - FACE OEDEMA [None]
  - LARYNGEAL OEDEMA [None]
  - PYREXIA [None]
  - HAEMATEMESIS [None]
  - RED BLOOD CELL COUNT DECREASED [None]
  - BLOOD CHOLINESTERASE DECREASED [None]
  - SKIN OEDEMA [None]
  - RASH [None]
  - OBSTRUCTIVE AIRWAYS DISORDER [None]
  - DYSPNOEA [None]
  - WHITE BLOOD CELL COUNT INCREASED [None]
  - DEVICE RELATED INFECTION [None]
  - INFECTIVE ANEURYSM [None]
  - ALANINE AMINOTRANSFERASE INCREASED [None]
  - C-REACTIVE PROTEIN INCREASED [None]
  - FIBRIN D DIMER INCREASED [None]
  - BLOOD IMMUNOGLOBULIN G INCREASED [None]
  - HUMAN HERPES VIRUS 6 SEROLOGY POSITIVE [None]
  - BLOOD ALBUMIN DECREASED [None]
  - NEUTROPHIL PERCENTAGE INCREASED [None]
  - AORTIC DISSECTION [None]
  - PLATELET COUNT INCREASED [None]
  - EPIDERMOLYSIS BULLOSA [None]
  - EYELID OEDEMA [None]
